FAERS Safety Report 9100960 (Version 1)
Quarter: 2013Q1

REPORT INFORMATION
  Report Type: Spontaneous
  Country: IN (occurrence: IN)
  Receive Date: 20130215
  Receipt Date: 20130215
  Transmission Date: 20140127
  Serious: Yes (Death, Hospitalization, Other)
  Sender: FDA-Public Use
  Company Number: PHHY2013IN014536

PATIENT
  Age: 60 Year
  Sex: Female

DRUGS (4)
  1. TASIGNA [Suspect]
     Indication: CHRONIC MYELOID LEUKAEMIA
     Dosage: 200 MG, BID
     Route: 048
     Dates: start: 2011, end: 20130128
  2. TRAPIC [Concomitant]
     Indication: HAEMORRHAGE
     Dosage: 500 MG
     Route: 048
  3. WYSOLONE [Concomitant]
     Dosage: 10 MG
     Route: 048
     Dates: start: 20121228, end: 20130128
  4. LEVOFLOXACIN [Concomitant]
     Indication: INFECTION
     Route: 048

REACTIONS (5)
  - Splenomegaly [Unknown]
  - Abdominal infection [Unknown]
  - Hepatomegaly [Unknown]
  - Multi-organ failure [Fatal]
  - Platelet count decreased [Unknown]
